FAERS Safety Report 21053656 (Version 1)
Quarter: 2022Q3

REPORT INFORMATION
  Report Type: Report from Study
  Country: US (occurrence: US)
  Receive Date: 20220707
  Receipt Date: 20220707
  Transmission Date: 20221027
  Serious: Yes (Hospitalization)
  Sender: FDA-Public Use
  Company Number: US-PFIZER INC-2020063678

PATIENT
  Age: 54 Year
  Sex: Female
  Weight: 105.7 kg

DRUGS (9)
  1. ABROCITINIB [Suspect]
     Active Substance: ABROCITINIB
     Indication: Dermatitis atopic
     Dosage: 200 MG, DAILY
     Route: 048
     Dates: start: 20190620, end: 20200207
  2. NAPROXEN [Concomitant]
     Active Substance: NAPROXEN
     Indication: Neck pain
     Dosage: 250 MG, EVERY 12 HOURS AS NEEDED
     Route: 048
     Dates: start: 20200205
  3. IBUPROFEN [Concomitant]
     Active Substance: IBUPROFEN
     Indication: Neck pain
     Dosage: 600 MG, EVERY 8 HOURS AS NEEDED
     Route: 048
     Dates: start: 20200205
  4. TRIAMCINOLONE [Concomitant]
     Active Substance: TRIAMCINOLONE
     Indication: Eczema
     Dosage: 0.1 %, DAILY AS NEEDED
     Route: 061
     Dates: start: 20190710
  5. FLONASE [Concomitant]
     Active Substance: FLUTICASONE PROPIONATE
     Indication: Hypersensitivity
     Dosage: 50 UG/ACTUATION, ONE SPRAY PER NOSTRIL DAILY
     Route: 045
     Dates: start: 20170413
  6. HYDROXYZINE [Concomitant]
     Active Substance: HYDROXYZINE HYDROCHLORIDE
     Indication: Dermatitis atopic
     Dosage: 25 MG, NIGHTLY AS NEEDED
     Route: 048
     Dates: start: 20170918
  7. LORATADINE [Concomitant]
     Active Substance: LORATADINE
     Indication: Hypersensitivity
     Dosage: 10 MG, DAILY
     Route: 048
     Dates: start: 20180531
  8. ZANTAC [Concomitant]
     Active Substance: RANITIDINE HYDROCHLORIDE
     Indication: Gastrooesophageal reflux disease
     Dosage: 150 MG, 2X/DAY
     Route: 048
     Dates: start: 20180726
  9. HYDROCORTISONE [Concomitant]
     Active Substance: HYDROCORTISONE
     Indication: Eczema
     Dosage: 0.2 %, DAILY
     Route: 061
     Dates: start: 20180920

REACTIONS (2)
  - Pulmonary imaging procedure abnormal [Recovered/Resolved]
  - Lower respiratory tract infection viral [Recovered/Resolved]

NARRATIVE: CASE EVENT DATE: 20200208
